FAERS Safety Report 15975425 (Version 1)
Quarter: 2019Q1

REPORT INFORMATION
  Report Type: Spontaneous
  Country: FR (occurrence: FR)
  Receive Date: 20190218
  Receipt Date: 20190218
  Transmission Date: 20190418
  Serious: Yes (Death)
  Sender: FDA-Public Use
  Company Number: FR-TEVA-2019-FR-1012672

PATIENT
  Age: 86 Year
  Sex: Male
  Weight: 70 kg

DRUGS (8)
  1. PREDNISOLONE. [Suspect]
     Active Substance: PREDNISOLONE
     Indication: INCREASED BRONCHIAL SECRETION
     Dosage: NR
     Route: 048
     Dates: start: 20181217, end: 20181221
  2. ELIQUIS [Suspect]
     Active Substance: APIXABAN
     Indication: PRODUCT USED FOR UNKNOWN INDICATION
     Dosage: 2 DOSAGE FORMS DAILY;
     Route: 048
  3. FLECAINE [Concomitant]
     Active Substance: FLECAINIDE
     Dosage: NR
     Route: 048
  4. LASILIX [Concomitant]
     Active Substance: FUROSEMIDE
     Dosage: LR
     Route: 048
  5. ZANIDIP [Concomitant]
     Active Substance: LERCANIDIPINE HYDROCHLORIDE
     Dosage: NR
     Route: 048
  6. PYOSTACINE [Concomitant]
     Active Substance: PRISTINAMYCIN
     Dosage: NR
     Route: 048
     Dates: start: 20181217, end: 20181221
  7. APROVEL [Concomitant]
     Active Substance: IRBESARTAN
     Dosage: NC
     Route: 048
  8. TEMERIT [Concomitant]
     Active Substance: NEBIVOLOL
     Dosage: NR
     Route: 048

REACTIONS (1)
  - Shock haemorrhagic [Fatal]

NARRATIVE: CASE EVENT DATE: 20181223
